FAERS Safety Report 6749426-1 (Version None)
Quarter: 2010Q2

REPORT INFORMATION
  Report Type: 
  Country: None (occurrence: None)
  Receive Date: 20100601
  Receipt Date: 20100517
  Transmission Date: 20101027
  Serious: Yes (Other)
  Sender: FDA-Public Use
  Company Number: US-ASTRAZENECA-2009SE15894

PATIENT
  Age: 7846 Day
  Sex: Female

DRUGS (6)
  1. SEROQUEL XR [Suspect]
     Route: 048
     Dates: start: 20051212
  2. ZYPREXA [Concomitant]
     Dates: start: 20051212
  3. ZYPREXA [Concomitant]
  4. XANAX [Concomitant]
     Dates: start: 20051212
  5. XANAX [Concomitant]
  6. NEURONTIN [Concomitant]
     Dates: start: 20051212

REACTIONS (3)
  - DIABETES MELLITUS [None]
  - NEUROPATHY PERIPHERAL [None]
  - TYPE 2 DIABETES MELLITUS [None]
